FAERS Safety Report 6191361-4 (Version None)
Quarter: 2009Q2

REPORT INFORMATION
  Report Type: 
  Country: None (occurrence: None)
  Receive Date: 20090515
  Receipt Date: 20070225
  Transmission Date: 20091009
  Serious: No
  Sender: FDA-Public Use
  Company Number: US-ASTRAZENECA-2006UW28031

PATIENT
  Age: 15919 Day
  Sex: Male

DRUGS (22)
  1. SEROQUEL [Suspect]
     Indication: BIPOLAR DISORDER
     Route: 048
     Dates: start: 20021004
  2. SEROQUEL [Suspect]
     Indication: INSOMNIA
     Route: 048
     Dates: start: 20021004
  3. SEROQUEL [Suspect]
     Dosage: 25 MG TO 100 MG
     Route: 048
     Dates: start: 20021001, end: 20070301
  4. SEROQUEL [Suspect]
     Dosage: 25 MG TO 100 MG
     Route: 048
     Dates: start: 20021001, end: 20070301
  5. RISPERDAL [Concomitant]
     Indication: BIPOLAR DISORDER
     Route: 065
     Dates: start: 20041201, end: 20060501
  6. RISPERDAL [Concomitant]
     Indication: INSOMNIA
     Route: 065
     Dates: start: 20041201, end: 20060501
  7. LISINOPRIL [Concomitant]
     Route: 048
  8. GLIPIZIDE [Concomitant]
     Route: 048
  9. ACTOS [Concomitant]
     Route: 048
  10. VOLTAREN [Concomitant]
     Route: 048
  11. NEURONTIN [Concomitant]
     Route: 048
  12. GLUCOPHAGE [Concomitant]
     Route: 048
  13. PEPCID [Concomitant]
     Route: 048
  14. DILTIAZEM [Concomitant]
     Route: 048
  15. ZOLOFT [Concomitant]
     Route: 048
  16. WELLBUTRIN XL [Concomitant]
     Route: 048
  17. ATIVAN [Concomitant]
     Route: 048
  18. TYLENOL [Concomitant]
     Route: 048
  19. PHENERGAN [Concomitant]
     Route: 048
  20. IMODIUM [Concomitant]
     Route: 048
  21. ZANTAC [Concomitant]
     Route: 048
  22. CELEBREX [Concomitant]
     Route: 048

REACTIONS (15)
  - CALCULUS URETERIC [None]
  - CONSTIPATION [None]
  - DEHYDRATION [None]
  - DIABETES MELLITUS [None]
  - DIABETES MELLITUS INADEQUATE CONTROL [None]
  - ERECTILE DYSFUNCTION [None]
  - GASTROENTERITIS [None]
  - HYPERCHOLESTEROLAEMIA [None]
  - HYPERGLYCAEMIA [None]
  - LEUKOCYTOSIS [None]
  - NEUROPATHY PERIPHERAL [None]
  - ONYCHOMYCOSIS [None]
  - POLYDIPSIA [None]
  - POLYURIA [None]
  - RHINITIS ALLERGIC [None]
